FAERS Safety Report 17640236 (Version 4)
Quarter: 2020Q2

REPORT INFORMATION
  Report Type: Spontaneous
  Country: JP (occurrence: JP)
  Receive Date: 20200408
  Receipt Date: 20200618
  Transmission Date: 20200713
  Serious: Yes (Hospitalization, Other)
  Sender: FDA-Public Use
  Company Number: JP-AMGEN-JPNSP2020056625

PATIENT
  Age: 67 Year
  Sex: Female
  Weight: 50.5 kg

DRUGS (10)
  1. PARSABIV [Suspect]
     Active Substance: ETELCALCETIDE HYDROCHLORIDE
     Dosage: 10 MG, Q56H
     Route: 010
     Dates: start: 20180731, end: 20190108
  2. FOSRENOL [Concomitant]
     Active Substance: LANTHANUM CARBONATE
     Dosage: 2250 MG, EVERYDAY
     Route: 048
  3. KALIMATE [Concomitant]
     Active Substance: CALCIUM POLYSTYRENE SULFONATE
     Dosage: 25 G, EVERYDAY
     Route: 048
     Dates: end: 20190801
  4. PARSABIV [Suspect]
     Active Substance: ETELCALCETIDE HYDROCHLORIDE
     Dosage: 15 MG, Q56H
     Route: 010
     Dates: start: 20190110
  5. OXAROL [Concomitant]
     Active Substance: MAXACALCITOL
     Dosage: 5 MICROGRAM, 3 TIMES/WK
     Route: 065
  6. RIONA [Concomitant]
     Active Substance: FERRIC CITRATE ANHYDROUS
     Dosage: 750 MG, EVERYDAY
     Route: 048
     Dates: start: 20180524
  7. PARSABIV [Suspect]
     Active Substance: ETELCALCETIDE HYDROCHLORIDE
     Indication: HYPERPARATHYROIDISM SECONDARY
     Dosage: 5 MG, Q56H
     Route: 010
     Dates: start: 20180616, end: 20180730
  8. KIKLIN [Concomitant]
     Active Substance: BIXALOMER
     Dosage: 3000 MG, EVERYDAY
     Route: 048
  9. EPOGIN [Concomitant]
     Active Substance: ERYTHROPOIETIN
     Dosage: 6000 IU, QW
     Route: 065
  10. PRECIPITATED CALCIUM CARBONATE [Concomitant]
     Active Substance: CALCIUM CARBONATE
     Dosage: 1500 MG, EVERYDAY
     Route: 048

REACTIONS (2)
  - Pneumonia [Recovered/Resolved]
  - Lacunar infarction [Recovering/Resolving]

NARRATIVE: CASE EVENT DATE: 20190924
